FAERS Safety Report 20173790 (Version 2)
Quarter: 2021Q4

REPORT INFORMATION
  Report Type: Spontaneous
  Country: GB (occurrence: GB)
  Receive Date: 20211213
  Receipt Date: 20211230
  Transmission Date: 20220304
  Serious: Yes (Death, Other)
  Sender: FDA-Public Use
  Company Number: None

PATIENT
  Age: 6 Decade
  Sex: Male

DRUGS (10)
  1. PREDNISOLONE [Suspect]
     Active Substance: PREDNISOLONE
     Indication: Granuloma
     Dosage: 40 MILLIGRAM, UNK
     Route: 065
     Dates: start: 2011, end: 2011
  2. PREDNISOLONE [Suspect]
     Active Substance: PREDNISOLONE
     Indication: Sarcoidosis
     Dosage: 20 MILLIGRAM (TAPERED TO 20/25 MILLIGRAM ON ALTERNATING DAYS)
     Route: 065
     Dates: start: 2011
  3. PREDNISOLONE [Suspect]
     Active Substance: PREDNISOLONE
     Dosage: 25 MILLIGRAM (TAPERED TO 20/25 MILLIGRAM ON ALTERNATING DAYS)
     Route: 065
     Dates: start: 2011
  4. PREDNISOLONE [Suspect]
     Active Substance: PREDNISOLONE
     Dosage: 20 MILLIGRAM (TAPERED TO 20/25 MILLIGRAM ON ALTERNATING DAYS)
     Route: 065
     Dates: start: 2011
  5. PREDNISOLONE [Suspect]
     Active Substance: PREDNISOLONE
     Dosage: UNK (DOSE INCREASED)
     Route: 065
     Dates: start: 2011
  6. PREDNISOLONE [Suspect]
     Active Substance: PREDNISOLONE
     Dosage: 1 MILLIGRAM, PER MONTH (GRADUALLY DECREASED)
     Route: 065
     Dates: start: 2011
  7. AZATHIOPRINE [Suspect]
     Active Substance: AZATHIOPRINE
     Indication: Granuloma
     Dosage: UNK
     Route: 065
     Dates: start: 2011
  8. METHOTREXATE [Suspect]
     Active Substance: METHOTREXATE
     Indication: Granuloma
     Dosage: UNK
     Route: 065
     Dates: start: 2011
  9. LEFLUNOMIDE [Suspect]
     Active Substance: LEFLUNOMIDE
     Indication: Granuloma
     Dosage: UNK
     Route: 065
     Dates: start: 2011
  10. HYDROXYCHLOROQUINE [Concomitant]
     Active Substance: HYDROXYCHLOROQUINE
     Indication: Granuloma
     Dosage: UNK
     Route: 065
     Dates: start: 2011

REACTIONS (5)
  - COVID-19 [Fatal]
  - Drug ineffective [Unknown]
  - Fatigue [Unknown]
  - Muscular weakness [Unknown]
  - Off label use [Unknown]

NARRATIVE: CASE EVENT DATE: 20110101
